FAERS Safety Report 5058918-5 (Version None)
Quarter: 2006Q2

REPORT INFORMATION
  Report Type: 
  Country: None (occurrence: None)
  Receive Date: 20060627
  Receipt Date: 20060307
  Transmission Date: 20061013
  Serious: Yes (Hospitalization)
  Sender: FDA-Public Use
  Company Number: 439502

PATIENT
  Sex: Female

DRUGS (1)
  1. XELODA [Suspect]
     Indication: HEPATIC NEOPLASM MALIGNANT
     Dosage: 2000 MG 4 PER DAY
     Dates: start: 20060115

REACTIONS (3)
  - ANOREXIA [None]
  - ASTHENIA [None]
  - DEHYDRATION [None]
